FAERS Safety Report 6969079-7 (Version None)
Quarter: 2010Q3

REPORT INFORMATION
  Report Type: 
  Country: None (occurrence: None)
  Receive Date: 20100903
  Receipt Date: 20100903
  Transmission Date: 20110219
  Serious: Yes (Other)
  Sender: FDA-Public Use
  Company Number: None

PATIENT
  Age: 28 Year
  Sex: Male
  Weight: 86.1834 kg

DRUGS (1)
  1. ZOLPIDEM TARTRATE [Suspect]
     Dosage: 10MG HS PO RARE USAGE - 2-3X/YR
     Route: 048

REACTIONS (3)
  - HALLUCINATION [None]
  - MEMORY IMPAIRMENT [None]
  - VISION BLURRED [None]
